FAERS Safety Report 8793150 (Version 1)
Quarter: 2012Q4

REPORT INFORMATION
  Report Type: 
  Country: US (occurrence: US)
  Receive Date: 20120917
  Receipt Date: 20120917
  Transmission Date: 20130627
  Serious: Yes (Other)
  Sender: FDA-Public Use
  Company Number: US-PFIZER INC-2012226822

PATIENT
  Sex: Female

DRUGS (6)
  1. ACCUPRIL [Suspect]
     Indication: BLOOD PRESSURE ABNORMAL
     Dosage: 10 mg, daily
     Route: 048
     Dates: end: 2011
  2. LEVOTHYROXINE [Concomitant]
     Indication: THYROID DISORDER
     Dosage: 137 ug, daily
  3. CRESTOR [Concomitant]
     Indication: BLOOD CHOLESTEROL ABNORMAL
     Dosage: 5 mg, daily
  4. SOTALOL [Concomitant]
     Dosage: one and a half tablets of 80 mg, 2x/day
     Route: 048
  5. WARFARIN [Concomitant]
     Indication: ANTICOAGULANT THERAPY
     Dosage: 3 mg, daily
  6. ZETIA [Concomitant]
     Dosage: 10 mg, daily
     Route: 048

REACTIONS (1)
  - Cerebrovascular accident [Unknown]
